FAERS Safety Report 9223405 (Version 2)
Quarter: 2013Q2

REPORT INFORMATION
  Report Type: Report from Study
  Country: US (occurrence: US)
  Receive Date: 20130410
  Receipt Date: 20130513
  Transmission Date: 20140414
  Serious: Yes (Death, Other)
  Sender: FDA-Public Use
  Company Number: US-ROCHE-1210451

PATIENT
  Sex: 0

DRUGS (2)
  1. ALTEPLASE [Suspect]
     Indication: CEREBRAL ARTERY OCCLUSION
     Route: 042
  2. PERFLUTREN [Suspect]
     Indication: CEREBRAL ARTERY OCCLUSION
     Dosage: 2.8 ML MCS, IV, DILUTED IN 100 CC NORMAL SALINE.
     Route: 042

REACTIONS (4)
  - Death [Fatal]
  - Haemorrhage intracranial [Unknown]
  - Drug effect decreased [Unknown]
  - Drug ineffective [Unknown]
